FAERS Safety Report 11366119 (Version 1)
Quarter: 2015Q3

REPORT INFORMATION
  Report Type: Spontaneous
  Country: US (occurrence: US)
  Receive Date: 20150811
  Receipt Date: 20150811
  Transmission Date: 20151125
  Serious: Yes (Hospitalization)
  Sender: FDA-Public Use
  Company Number: US-MERCK-1505USA011034

PATIENT
  Sex: Female
  Weight: 127 kg

DRUGS (10)
  1. CANCIDAS [Concomitant]
     Active Substance: CASPOFUNGIN ACETATE
     Indication: INFECTION
     Dosage: 50 MG, QD
     Route: 065
  2. LEVOFLOXACIN. [Concomitant]
     Active Substance: LEVOFLOXACIN
     Indication: INFECTION
     Dosage: 750 MG, QD
     Route: 048
  3. PROTONIX [Concomitant]
     Active Substance: PANTOPRAZOLE SODIUM
     Indication: PRODUCT USED FOR UNKNOWN INDICATION
     Dosage: 40 MG, QD
     Route: 048
  4. OXYCODONE [Concomitant]
     Active Substance: OXYCODONE
     Indication: PAIN
     Dosage: UNK, UNK, UNK
     Route: 048
  5. CUBICIN [Suspect]
     Active Substance: DAPTOMYCIN
     Indication: DIABETIC ULCER
     Dosage: 7.48 MG/KG, QD
     Route: 042
     Dates: start: 20141217, end: 20150318
  6. CUBICIN [Suspect]
     Active Substance: DAPTOMYCIN
     Dosage: 7.48 MG/KG, QD
     Route: 042
     Dates: start: 20150407, end: 20150410
  7. CUBICIN [Suspect]
     Active Substance: DAPTOMYCIN
     Dosage: 950 MG, QD
     Route: 042
     Dates: start: 20150407, end: 20150410
  8. CUBICIN [Suspect]
     Active Substance: DAPTOMYCIN
     Indication: STAPHYLOCOCCAL BACTERAEMIA
     Dosage: 950 MG, QD
     Route: 042
     Dates: start: 20141217, end: 20150318
  9. DILAUDID [Concomitant]
     Active Substance: HYDROMORPHONE HYDROCHLORIDE
     Indication: PAIN
     Dosage: 0.5 MG, Q3H PRN
     Route: 048
  10. LYRICA [Concomitant]
     Active Substance: PREGABALIN
     Indication: DIABETIC NEUROPATHY
     Dosage: 150 MG, BID
     Route: 048

REACTIONS (2)
  - Diabetic ulcer [Unknown]
  - Treatment noncompliance [Unknown]

NARRATIVE: CASE EVENT DATE: 20150407
